FAERS Safety Report 23651011 (Version 1)
Quarter: 2024Q1

REPORT INFORMATION
  Report Type: Spontaneous
  Country: US (occurrence: US)
  Receive Date: 20240320
  Receipt Date: 20240320
  Transmission Date: 20240410
  Serious: No
  Sender: FDA-Public Use
  Company Number: US-ALVOGEN-2023092838

PATIENT

DRUGS (2)
  1. HYDROCODONE BITARTRATE [Suspect]
     Active Substance: HYDROCODONE BITARTRATE
     Indication: Back pain
     Dosage: PATIENT HAD BEEN TAKING IT SINCE 8 MONTHS.
     Dates: start: 2023
  2. HYDROCODONE BITARTRATE [Suspect]
     Active Substance: HYDROCODONE BITARTRATE
     Indication: Back pain
     Dosage: 40 MG EVERY 12 HR?EXPIRATION DATE: UU-FEB-2026?DATE OF MANUFACTURE: 03-MAR-2023
     Dates: start: 2023

REACTIONS (2)
  - Therapeutic response shortened [Unknown]
  - Physical product label issue [Unknown]
